FAERS Safety Report 13668805 (Version 2)
Quarter: 2017Q3

REPORT INFORMATION
  Report Type: Report from Study
  Country: US (occurrence: BR)
  Receive Date: 20170620
  Receipt Date: 20170901
  Transmission Date: 20171127
  Serious: Yes (Death, Hospitalization)
  Sender: FDA-Public Use
  Company Number: US-SUNOVION-2017SUN002553

PATIENT
  Sex: Male

DRUGS (4)
  1. DORFLEX [Concomitant]
     Active Substance: CAFFEINE\DIPYRONE\ORPHENADRINE
  2. INDACATEROL AND GLYCOPYRROLATE [Suspect]
     Active Substance: GLYCOPYRROLATE\INDACATEROL MALEATE
     Indication: PRODUCT USED FOR UNKNOWN INDICATION
     Route: 065
  3. AAS [Concomitant]
     Active Substance: ASPIRIN
  4. MELHORAL [Concomitant]
     Active Substance: ASPIRIN\CAFFEINE

REACTIONS (5)
  - Fall [Unknown]
  - Lung disorder [Fatal]
  - Femur fracture [Unknown]
  - Neoplasm malignant [Fatal]
  - Pneumonia [Fatal]
